FAERS Safety Report 19987461 (Version 1)
Quarter: 2021Q4

REPORT INFORMATION
  Report Type: Spontaneous
  Country: US (occurrence: US)
  Receive Date: 20211023
  Receipt Date: 20211023
  Transmission Date: 20220303
  Serious: No
  Sender: FDA-Public Use
  Company Number: US-JNJFOC-20211018144

PATIENT
  Age: 70 Year
  Sex: Male
  Weight: 96.25 kg

DRUGS (1)
  1. TREMFYA [Suspect]
     Active Substance: GUSELKUMAB
     Indication: Psoriasis
     Route: 065
     Dates: start: 2020

REACTIONS (3)
  - Injection site haemorrhage [Unknown]
  - Drug delivery system issue [Unknown]
  - Underdose [Unknown]

NARRATIVE: CASE EVENT DATE: 20211008
